FAERS Safety Report 8952465 (Version 1)
Quarter: 2012Q4

REPORT INFORMATION
  Report Type: 
  Country: IT (occurrence: IT)
  Receive Date: 20121205
  Receipt Date: 20121205
  Transmission Date: 20130627
  Serious: Yes (Other)
  Sender: FDA-Public Use
  Company Number: IT-ACCORD-015452

PATIENT
  Age: 55 Year
  Sex: Male
  Weight: 60 kg

DRUGS (3)
  1. PREDNISONE [Suspect]
     Indication: LIVER TRANSPLANT
  2. MYCOPHENOLIC ACID [Suspect]
     Indication: LIVER TRANSPLANT
  3. TACROLIMUS [Suspect]
     Indication: LIVER TRANSPLANT

REACTIONS (9)
  - Accidental overdose [Unknown]
  - Drug administration error [Unknown]
  - Self injurious behaviour [Recovered/Resolved]
  - Aggression [Recovered/Resolved]
  - Mental disorder [Recovered/Resolved]
  - Confusional state [Recovered/Resolved]
  - Agitation [Recovered/Resolved]
  - Irritability [Recovered/Resolved]
  - Impulsive behaviour [Recovered/Resolved]
